FAERS Safety Report 24335258 (Version 1)
Quarter: 2024Q3

REPORT INFORMATION
  Report Type: Spontaneous
  Country: US (occurrence: US)
  Receive Date: 20240918
  Receipt Date: 20240918
  Transmission Date: 20241017
  Serious: No
  Sender: SANOFI AVENTIS
  Company Number: US-SA-2024SA266914

PATIENT
  Age: 53 Year
  Sex: Male

DRUGS (1)
  1. CEREZYME [Suspect]
     Active Substance: IMIGLUCERASE
     Indication: Gaucher^s disease
     Dosage: 5600 UNITS, QOW
     Route: 042
     Dates: start: 202007

REACTIONS (2)
  - Pain in extremity [Unknown]
  - Condition aggravated [Unknown]
